FAERS Safety Report 16276285 (Version 3)
Quarter: 2019Q3

REPORT INFORMATION
  Report Type: Spontaneous
  Country: GR (occurrence: GR)
  Receive Date: 20190506
  Receipt Date: 20190910
  Transmission Date: 20191004
  Serious: Yes (Other)
  Sender: FDA-Public Use
  Company Number: GR-JNJFOC-20190434734

PATIENT
  Age: 33 Year
  Sex: Female

DRUGS (1)
  1. USTEKINUMAB [Suspect]
     Active Substance: USTEKINUMAB
     Indication: DERMATITIS PSORIASIFORM
     Route: 058

REACTIONS (4)
  - End stage renal disease [Unknown]
  - Off label use [Unknown]
  - Lupus nephritis [Unknown]
  - Product use in unapproved indication [Unknown]
